FAERS Safety Report 17196399 (Version 2)
Quarter: 2020Q1

REPORT INFORMATION
  Report Type: Report from Study
  Country: CO (occurrence: CO)
  Receive Date: 20191224
  Receipt Date: 20200117
  Transmission Date: 20200409
  Serious: Yes (Hospitalization, Other)
  Sender: FDA-Public Use
  Company Number: CO-ASTELLAS-2019US027008

PATIENT
  Age: 35 Year
  Sex: Female
  Weight: 55 kg

DRUGS (22)
  1. TACROLIMUS. [Suspect]
     Active Substance: TACROLIMUS
     Dosage: 22 MG (4 CAPSULES OF 5MG AND 2 CAPSULES OF 1MG) ONCE DAILY
     Route: 048
     Dates: start: 20190927, end: 20191212
  2. TACROLIMUS. [Suspect]
     Active Substance: TACROLIMUS
     Dosage: 19 MG (3 CAPSULES OF 5MG AND 4 CAPSULES OF 1MG) ONCE DAILY
     Route: 048
     Dates: start: 20191213
  3. MYCOPHENOLATE [Concomitant]
     Active Substance: MYCOPHENOLIC ACID
     Route: 048
  4. FLUCONAZOL [Concomitant]
     Active Substance: FLUCONAZOLE
     Indication: LIVER DISORDER
     Route: 048
  5. TACROLIMUS. [Suspect]
     Active Substance: TACROLIMUS
     Indication: RENAL TRANSPLANT
     Dosage: 5 MG, ONCE DAILY (1 CAPSULE OF 5 MG)
     Route: 048
     Dates: start: 20190525, end: 20190603
  6. TACROLIMUS. [Suspect]
     Active Substance: TACROLIMUS
     Dosage: 24 MG, ONCE DAILY (4 CAPSULES OF 5 MG AND 4 CAPSULES OF 1 MG)
     Route: 048
     Dates: start: 20190604, end: 20190815
  7. ESOMEPRAZOLE. [Concomitant]
     Active Substance: ESOMEPRAZOLE MAGNESIUM
     Indication: GASTRITIS
     Route: 048
  8. PRAZOSIN. [Concomitant]
     Active Substance: PRAZOSIN
     Indication: PRODUCT USED FOR UNKNOWN INDICATION
     Route: 065
  9. MYCOPHENOLATE [Concomitant]
     Active Substance: MYCOPHENOLIC ACID
     Indication: RENAL TRANSPLANT
     Route: 048
     Dates: start: 20190525
  10. TACROLIMUS. [Suspect]
     Active Substance: TACROLIMUS
     Dosage: 25 MG, ONCE DAILY (5 CAPSULES OF 5MG )
     Route: 048
     Dates: start: 20190816, end: 20190926
  11. MYCOPHENOLATE [Concomitant]
     Active Substance: MYCOPHENOLIC ACID
     Indication: PROPHYLAXIS
     Dosage: 720 MG (360 MGCAPSULES), ONCE DAILY
     Route: 048
  12. MYCOPHENOLATE [Concomitant]
     Active Substance: MYCOPHENOLIC ACID
     Dosage: 360 MG (180 MG CAPSULES), ONCE DAILY
     Route: 048
  13. VERAPAMIL [Concomitant]
     Active Substance: VERAPAMIL HYDROCHLORIDE
     Indication: PRODUCT USED FOR UNKNOWN INDICATION
     Route: 065
  14. PRAZOSIN. [Concomitant]
     Active Substance: PRAZOSIN
     Route: 065
  15. WARFARIN [Concomitant]
     Active Substance: WARFARIN
     Route: 065
     Dates: start: 20190811
  16. FUROSEMIDE. [Concomitant]
     Active Substance: FUROSEMIDE
     Indication: MICTURITION DISORDER
     Route: 048
  17. CLONIDINE. [Concomitant]
     Active Substance: CLONIDINE
     Indication: PRODUCT USED FOR UNKNOWN INDICATION
     Route: 065
  18. WARFARIN [Concomitant]
     Active Substance: WARFARIN
     Indication: PRODUCT USED FOR UNKNOWN INDICATION
     Route: 065
  19. LOSARTAN. [Concomitant]
     Active Substance: LOSARTAN
     Indication: BLOOD PRESSURE MEASUREMENT
     Dosage: 100MG IN THE MORNING AND 50MG IN THE NIGHT
     Route: 048
     Dates: end: 20191203
  20. CARVEDILOL. [Concomitant]
     Active Substance: CARVEDILOL
     Indication: HYPERTENSION
     Route: 048
  21. PREDNISOLONA [PREDNISOLONE] [Concomitant]
     Indication: RENAL TRANSPLANT
     Route: 048
     Dates: start: 20190525
  22. PREDNISOLONE. [Concomitant]
     Active Substance: PREDNISOLONE
     Indication: PRODUCT USED FOR UNKNOWN INDICATION
     Route: 065
     Dates: start: 20190525

REACTIONS (5)
  - Blood electrolytes decreased [Recovered/Resolved]
  - Immunosuppressant drug level decreased [Not Recovered/Not Resolved]
  - Kidney transplant rejection [Recovered/Resolved]
  - White blood cell count decreased [Recovering/Resolving]
  - Blood creatinine increased [Recovering/Resolving]

NARRATIVE: CASE EVENT DATE: 20190604
